FAERS Safety Report 19805573 (Version 2)
Quarter: 2021Q4

REPORT INFORMATION
  Report Type: Spontaneous
  Country: JP (occurrence: JP)
  Receive Date: 20210908
  Receipt Date: 20211012
  Transmission Date: 20220303
  Serious: Yes (Other)
  Sender: FDA-Public Use
  Company Number: JP-ONO-2021JP021112

PATIENT

DRUGS (3)
  1. OPICAPONE [Suspect]
     Active Substance: OPICAPONE
     Indication: Parkinson^s disease
     Dosage: 25 MILLIGRAM, DAILY
     Route: 048
     Dates: start: 202106, end: 202107
  2. LEVODOPA [Concomitant]
     Active Substance: LEVODOPA
     Indication: Product used for unknown indication
     Dosage: 400 MILLIGRAM, UNKNOWN
  3. ZONISAMIDE [Concomitant]
     Active Substance: ZONISAMIDE
     Indication: Product used for unknown indication
     Dosage: 25 MILLIGRAM, UNKNOWN

REACTIONS (7)
  - Acute kidney injury [Unknown]
  - Oligodipsia [Unknown]
  - Hypermagnesaemia [Unknown]
  - Hypercalcaemia [Unknown]
  - Decreased appetite [Unknown]
  - Dehydration [Unknown]
  - Somnolence [Unknown]

NARRATIVE: CASE EVENT DATE: 20210701
